FAERS Safety Report 21143888 (Version 1)
Quarter: 2022Q3

REPORT INFORMATION
  Report Type: Spontaneous
  Country: US (occurrence: None)
  Receive Date: 20220728
  Receipt Date: 20220728
  Transmission Date: 20221027
  Serious: No
  Sender: FDA-Public Use
  Company Number: None

PATIENT
  Age: 41 Year
  Sex: Female

DRUGS (1)
  1. ODOR EATERS [Suspect]
     Active Substance: TOLNAFTATE
     Indication: Skin odour abnormal
     Dosage: FREQUENCY : AS NEEDED;?
     Route: 061
     Dates: start: 20220624, end: 20220624

REACTIONS (4)
  - Skin discolouration [None]
  - Skin exfoliation [None]
  - Chemical burn of skin [None]
  - Impaired healing [None]

NARRATIVE: CASE EVENT DATE: 20220624
